FAERS Safety Report 21821858 (Version 1)
Quarter: 2023Q1

REPORT INFORMATION
  Report Type: Spontaneous
  Country: US (occurrence: None)
  Receive Date: 20230105
  Receipt Date: 20230105
  Transmission Date: 20230417
  Serious: Yes (Hospitalization, Other)
  Sender: FDA-Public Use
  Company Number: US-VistaPharm, Inc.-VER202212-001038

PATIENT
  Sex: Male

DRUGS (2)
  1. MYCOPHENOLATE MOFETIL [Suspect]
     Active Substance: MYCOPHENOLATE MOFETIL
     Indication: Immunosuppression
     Dosage: UNKNOWN
     Route: 065
  2. TACROLIMUS [Suspect]
     Active Substance: TACROLIMUS
     Indication: Immunosuppression
     Dosage: UNKNOWN
     Route: 065

REACTIONS (5)
  - Herpes zoster oticus [Not Recovered/Not Resolved]
  - Gradenigo^s syndrome [Recovering/Resolving]
  - Varicella zoster virus infection [Recovered/Resolved]
  - Meningoencephalitis viral [Recovered/Resolved]
  - Staphylococcal infection [Recovered/Resolved]
